FAERS Safety Report 17686631 (Version 1)
Quarter: 2020Q2

REPORT INFORMATION
  Report Type: Report from Study
  Country: US (occurrence: US)
  Receive Date: 20200420
  Receipt Date: 20200420
  Transmission Date: 20200714
  Serious: No
  Sender: FDA-Public Use
  Company Number: US-INCYTE CORPORATION-2020IN003135

PATIENT

DRUGS (3)
  1. JAKAFI [Suspect]
     Active Substance: RUXOLITINIB
     Dosage: 15 MILLIGRAM, BID
     Route: 065
  2. JAKAFI [Suspect]
     Active Substance: RUXOLITINIB
     Dosage: 10 MILLIGRAM, BID
     Route: 065
  3. JAKAFI [Suspect]
     Active Substance: RUXOLITINIB
     Indication: POLYCYTHAEMIA VERA
     Dosage: 10 MILLIGRAM, BID
     Route: 065

REACTIONS (9)
  - Haemoglobin abnormal [Unknown]
  - Platelet count abnormal [Unknown]
  - Red cell distribution width abnormal [Unknown]
  - White blood cell count abnormal [Unknown]
  - Blood erythropoietin abnormal [Unknown]
  - Blood lactate dehydrogenase abnormal [Unknown]
  - Toxicity to various agents [Unknown]
  - Haematocrit abnormal [Unknown]
  - Fatigue [Unknown]
